FAERS Safety Report 23106203 (Version 7)
Quarter: 2024Q1

REPORT INFORMATION
  Report Type: Spontaneous
  Country: CA (occurrence: CA)
  Receive Date: 20231025
  Receipt Date: 20240305
  Transmission Date: 20240409
  Serious: Yes (Other)
  Sender: FDA-Public Use
  Company Number: CA-KARYOPHARM-2023KPT001594

PATIENT

DRUGS (7)
  1. XPOVIO [Suspect]
     Active Substance: SELINEXOR
     Indication: Plasma cell myeloma
     Dosage: 40 MG, WEEKLY FOR 5 WEEKS (20 MG/ TAKE 2 TABLETS 40 MG TOTAL) BY MOUTH ONE TIME PER WEEK FOR 5 WEEKS
     Route: 048
     Dates: start: 20230707
  2. XPOVIO [Suspect]
     Active Substance: SELINEXOR
     Dosage: 40 MG (2 X 20 MG), ONCE WEEKLY
     Route: 048
     Dates: start: 202311
  3. DEXAMETHASONE [Concomitant]
     Active Substance: DEXAMETHASONE
     Indication: Plasma cell myeloma
     Dosage: UNK
  4. POMALIDOMIDE [Concomitant]
     Active Substance: POMALIDOMIDE
     Indication: Plasma cell myeloma
     Dosage: UNK
  5. ALBENDAZOLE [Concomitant]
     Active Substance: ALBENDAZOLE
  6. ONDANSETRON [Concomitant]
     Active Substance: ONDANSETRON
     Indication: Nausea
     Dosage: UNK
  7. METOCLOPRAMIDE HYDROCHLORIDE [Concomitant]
     Active Substance: METOCLOPRAMIDE HYDROCHLORIDE
     Dosage: UNK

REACTIONS (21)
  - Circulatory collapse [Unknown]
  - Pneumonia [Recovering/Resolving]
  - Abdominal discomfort [Not Recovered/Not Resolved]
  - Dyspepsia [Unknown]
  - Prostatomegaly [Unknown]
  - Hypotension [Recovered/Resolved]
  - Fall [Unknown]
  - Brain fog [Recovered/Resolved]
  - Illness [Recovering/Resolving]
  - Influenza [Unknown]
  - Asthenia [Unknown]
  - Constipation [Recovered/Resolved]
  - Fatigue [Not Recovered/Not Resolved]
  - Weight decreased [Not Recovered/Not Resolved]
  - Decreased appetite [Recovering/Resolving]
  - Nausea [Recovering/Resolving]
  - Dyspnoea [Unknown]
  - Dizziness [Unknown]
  - Haemoglobin decreased [Unknown]
  - Abdominal pain upper [Unknown]
  - Product dose omission issue [Unknown]

NARRATIVE: CASE EVENT DATE: 20230101
